FAERS Safety Report 5814645-5 (Version None)
Quarter: 2008Q3

REPORT INFORMATION
  Report Type: 
  Country: None (occurrence: None)
  Receive Date: 20080718
  Receipt Date: 20080708
  Transmission Date: 20090109
  Serious: Yes (Hospitalization)
  Sender: FDA-Public Use
  Company Number: JP-ABBOTT-08P-087-0462015-00

PATIENT
  Age: 41 Year
  Sex: Female

DRUGS (1)
  1. TAKEPRON [Suspect]
     Indication: GASTROOESOPHAGEAL REFLUX DISEASE
     Route: 048
     Dates: start: 20070112, end: 20070214

REACTIONS (1)
  - ECTOPIC PREGNANCY [None]
